FAERS Safety Report 6483894-8 (Version None)
Quarter: 2009Q4

REPORT INFORMATION
  Report Type: 
  Country: None (occurrence: None)
  Receive Date: 20091123
  Receipt Date: 20090722
  Transmission Date: 20100525
  Serious: No
  Sender: FDA-Public Use
  Company Number: 8049428

PATIENT
  Age: 55 Year
  Sex: Female
  Weight: 85.72 kg

DRUGS (4)
  1. CIMZIA [Suspect]
     Indication: CROHN'S DISEASE
     Dosage: 400 MG SC
     Route: 058
     Dates: start: 20090708
  2. SYNTHROID [Concomitant]
  3. METHADONE HYDROCHLORIDE [Concomitant]
  4. HYDROCODONE [Concomitant]

REACTIONS (1)
  - ARTHRALGIA [None]
